FAERS Safety Report 4481065-8 (Version None)
Quarter: 2004Q4

REPORT INFORMATION
  Report Type: 
  Country: None (occurrence: None)
  Receive Date: 20041021
  Receipt Date: 20041015
  Transmission Date: 20050328
  Serious: Yes (Hospitalization)
  Sender: FDA-Public Use
  Company Number: CH-ROCHE-383279

PATIENT
  Age: 56 Year
  Sex: Female

DRUGS (2)
  1. RIVOTRIL [Suspect]
     Indication: TRIGEMINAL NEURALGIA
     Route: 046
     Dates: start: 20040921, end: 20040926
  2. TEGRETOL [Suspect]
     Indication: TRIGEMINAL NEURALGIA
     Route: 065
     Dates: start: 20040921, end: 20040926

REACTIONS (5)
  - CONJUNCTIVITIS [None]
  - HYPONATRAEMIA [None]
  - LEUKOCYTOSIS [None]
  - PYREXIA [None]
  - RASH MACULO-PAPULAR [None]
